FAERS Safety Report 26169476 (Version 1)
Quarter: 2025Q4

REPORT INFORMATION
  Report Type: Report from Study
  Country: CA (occurrence: CA)
  Receive Date: 20251217
  Receipt Date: 20251217
  Transmission Date: 20260117
  Serious: Yes (Other)
  Sender: PFIZER
  Company Number: CA-PFIZER INC-202500242768

PATIENT
  Age: 27 Year
  Sex: Male

DRUGS (1)
  1. RUXIENCE [Suspect]
     Active Substance: RITUXIMAB-PVVR
     Indication: Glomerulonephritis membranous
     Dosage: 500 UG, EVERY 6 MONTHS, FIRST TREATMENT
     Route: 042
     Dates: start: 20251209, end: 20251209

REACTIONS (9)
  - Tachycardia [Recovering/Resolving]
  - Feeling hot [Recovered/Resolved]
  - Rash [Recovering/Resolving]
  - Rash pruritic [Recovering/Resolving]
  - Oropharyngeal pain [Recovering/Resolving]
  - Dizziness [Recovering/Resolving]
  - Nausea [Recovering/Resolving]
  - Chest discomfort [Unknown]
  - Blood pressure fluctuation [Recovered/Resolved]

NARRATIVE: CASE EVENT DATE: 20251209
